FAERS Safety Report 21268095 (Version 1)
Quarter: 2022Q3

REPORT INFORMATION
  Report Type: Spontaneous
  Country: US (occurrence: US)
  Receive Date: 20220829
  Receipt Date: 20220829
  Transmission Date: 20221026
  Serious: No
  Sender: FDA-Public Use
  Company Number: US-BEH-2022149001

PATIENT
  Age: 46 Year
  Sex: Female
  Weight: 108.84 kg

DRUGS (2)
  1. HIZENTRA [Suspect]
     Active Substance: HUMAN IMMUNOGLOBULIN G
     Indication: Dermatomyositis
     Dosage: 10 GRAM, BIW
     Route: 058
     Dates: start: 20201013
  2. HIZENTRA [Suspect]
     Active Substance: HUMAN IMMUNOGLOBULIN G
     Indication: Myopathy
     Dosage: 2 GRAM, BIW
     Route: 058
     Dates: start: 20201013

REACTIONS (5)
  - Weight fluctuation [Unknown]
  - Infection [Unknown]
  - Weight fluctuation [Unknown]
  - No adverse event [Unknown]
  - Off label use [Unknown]

NARRATIVE: CASE EVENT DATE: 20220601
